FAERS Safety Report 7409060-7 (Version None)
Quarter: 2011Q2

REPORT INFORMATION
  Report Type: 
  Country: None (occurrence: None)
  Receive Date: 20110412
  Receipt Date: 20110331
  Transmission Date: 20111010
  Serious: Yes (Hospitalization, Other)
  Sender: FDA-Public Use
  Company Number: CA-SANOFI-AVENTIS-2011SA019829

PATIENT
  Age: 71 Year
  Sex: Male

DRUGS (5)
  1. LANTUS [Suspect]
     Route: 058
     Dates: start: 20010101
  2. INSULIN TORONTO [Concomitant]
  3. SOLOSTAR [Suspect]
  4. ANTIHYPERTENSIVES [Concomitant]
  5. ALL OTHER THERAPEUTIC PRODUCTS [Concomitant]

REACTIONS (5)
  - TREMOR [None]
  - HYPERHIDROSIS [None]
  - PNEUMONIA [None]
  - CONFUSIONAL STATE [None]
  - HYPOGLYCAEMIA [None]
